FAERS Safety Report 24241815 (Version 1)
Quarter: 2024Q3

REPORT INFORMATION
  Report Type: Report from Study
  Country: US (occurrence: US)
  Receive Date: 20240823
  Receipt Date: 20240823
  Transmission Date: 20241016
  Serious: Yes (Other)
  Sender: ABBVIE
  Company Number: US-ABBVIE-5888284

PATIENT
  Sex: Female

DRUGS (1)
  1. HUMIRA [Suspect]
     Active Substance: ADALIMUMAB
     Indication: Rheumatoid arthritis
     Dosage: CITRATE FREE
     Route: 058
     Dates: start: 20231106

REACTIONS (9)
  - Hepatic cirrhosis [Not Recovered/Not Resolved]
  - Hyperthyroidism [Not Recovered/Not Resolved]
  - Nodule [Not Recovered/Not Resolved]
  - Platelet count decreased [Not Recovered/Not Resolved]
  - Arthralgia [Not Recovered/Not Resolved]
  - Chest pain [Not Recovered/Not Resolved]
  - Headache [Unknown]
  - Palpitations [Unknown]
  - Arthritis [Not Recovered/Not Resolved]
